FAERS Safety Report 17796236 (Version 2)
Quarter: 2020Q2

REPORT INFORMATION
  Report Type: Report from Study
  Country: MX (occurrence: MX)
  Receive Date: 20200517
  Receipt Date: 20200522
  Transmission Date: 20200714
  Serious: Yes (Death, Other)
  Sender: FDA-Public Use
  Company Number: NVSC2020MX133701

PATIENT
  Age: 66 Year
  Sex: Male
  Weight: 84 kg

DRUGS (4)
  1. EXFORGE HCT [Suspect]
     Active Substance: AMLODIPINE BESYLATE\HYDROCHLOROTHIAZIDE\VALSARTAN
     Indication: HYPERTENSION
     Dosage: 1 DF, TID
     Route: 048
     Dates: start: 201908
  2. OZONE [Concomitant]
     Active Substance: OZONE
     Indication: OXYGEN THERAPY
     Dosage: 1 DF
     Route: 065
     Dates: start: 201908, end: 20200419
  3. EXFORGE HCT [Suspect]
     Active Substance: AMLODIPINE BESYLATE\HYDROCHLOROTHIAZIDE\VALSARTAN
     Indication: BLOOD PRESSURE ABNORMAL
     Dosage: 3 DF, QD
     Route: 048
     Dates: end: 20200419
  4. OZONE [Concomitant]
     Active Substance: OZONE
     Indication: RENAL DISORDER

REACTIONS (7)
  - Inappropriate schedule of product administration [Unknown]
  - Off label use [Unknown]
  - Renal failure [Unknown]
  - Blood glucose abnormal [Unknown]
  - Myocardial infarction [Fatal]
  - Eye swelling [Unknown]
  - Feeling abnormal [Unknown]

NARRATIVE: CASE EVENT DATE: 201908
